FAERS Safety Report 9790829 (Version 4)
Quarter: 2014Q3

REPORT INFORMATION
  Report Type: Report from Study
  Country: FR (occurrence: FR)
  Receive Date: 20131231
  Receipt Date: 20140725
  Transmission Date: 20150326
  Serious: Yes (Hospitalization)
  Sender: FDA-Public Use
  Company Number: PHHY2012FR076530

PATIENT
  Age: 92 Year
  Sex: Female
  Weight: 52 kg

DRUGS (8)
  1. CIPROFIBRATE [Concomitant]
     Active Substance: CIPROFIBRATE
  2. SERESTA [Concomitant]
     Active Substance: OXAZEPAM
     Dosage: UNK UKN, UNK
     Dates: start: 2012
  3. PAROXETINE [Concomitant]
     Active Substance: PAROXETINE\PAROXETINE HYDROCHLORIDE
     Dosage: UNK UKN, UNK
     Dates: end: 2012
  4. PARACETAMOL [Concomitant]
     Active Substance: ACETAMINOPHEN
     Dosage: UNK UKN, UNK
     Dates: end: 2012
  5. CYMBALTA [Concomitant]
     Active Substance: DULOXETINE HYDROCHLORIDE
     Dosage: UNK UKN, UNK
     Dates: start: 2012
  6. LANSOPRAZOLE. [Concomitant]
     Active Substance: LANSOPRAZOLE
     Dosage: UNK UKN, UNK
     Dates: end: 2012
  7. FIXICAL VITAMINE D3 [Concomitant]
     Active Substance: CALCIUM CARBONATE\VITAMIN D
     Dosage: UNK UKN, UNK
     Dates: start: 2012
  8. ACLASTA [Suspect]
     Active Substance: ZOLEDRONIC ACID
     Indication: OSTEOPOROTIC FRACTURE
     Route: 042
     Dates: start: 201111

REACTIONS (2)
  - Depression [Recovering/Resolving]
  - Mental disorder [Recovering/Resolving]

NARRATIVE: CASE EVENT DATE: 201206
